APPROVED DRUG PRODUCT: LIDOCAINE HYDROCHLORIDE
Active Ingredient: LIDOCAINE HYDROCHLORIDE
Strength: 4%
Dosage Form/Route: SOLUTION;TOPICAL
Application: A218411 | Product #001 | TE Code: AT
Applicant: THE J MOLNER CO OU
Approved: Apr 29, 2024 | RLD: No | RS: No | Type: RX